FAERS Safety Report 7055723-5 (Version None)
Quarter: 2010Q4

REPORT INFORMATION
  Report Type: 
  Country: None (occurrence: None)
  Receive Date: 20101020
  Receipt Date: 20101020
  Transmission Date: 20110411
  Serious: No
  Sender: FDA-Public Use
  Company Number: None

PATIENT
  Sex: Female
  Weight: 103.4201 kg

DRUGS (2)
  1. RID MOUSSE [Suspect]
     Indication: LICE INFESTATION
     Dosage: TWICE A MONTH SINCE IT STARTED FAILED EACH TIME LOSS OF HAIR / DAMAGE TO SCALP
     Dates: start: 20100601, end: 20101001
  2. MAYO TREATMENT ^THE DISH SOAP^ WASHINGS [Concomitant]

REACTIONS (3)
  - ALOPECIA [None]
  - DRUG INEFFECTIVE [None]
  - SKIN ULCER [None]
